FAERS Safety Report 20919419 (Version 5)
Quarter: 2022Q4

REPORT INFORMATION
  Report Type: Report from Study
  Country: CA (occurrence: CA)
  Receive Date: 20220606
  Receipt Date: 20221010
  Transmission Date: 20230113
  Serious: Yes (Hospitalization, Other)
  Sender: FDA-Public Use
  Company Number: CA-MYLANLABS-2022M1038124

PATIENT
  Age: 15 Year
  Sex: Female
  Weight: 58.957 kg

DRUGS (6)
  1. HULIO [Suspect]
     Active Substance: ADALIMUMAB-FKJP
     Indication: Colitis ulcerative
     Dosage: 40 MILLIGRAM 14
     Route: 065
  2. HULIO [Suspect]
     Active Substance: ADALIMUMAB-FKJP
     Dosage: 160 MILLIGRAM (160MG, WEEK 0 = 1ST DAY) FOUR INJECTION
     Route: 065
     Dates: start: 20220526
  3. HULIO [Suspect]
     Active Substance: ADALIMUMAB-FKJP
     Dosage: UNK, BIWEEKLY (EVERY 2 WEEKS)
     Route: 065
  4. HULIO [Suspect]
     Active Substance: ADALIMUMAB-FKJP
     Dosage: 40 MILLIGRAM, QW
     Route: 058
     Dates: start: 20220526
  5. HULIO [Suspect]
     Active Substance: ADALIMUMAB-FKJP
     Dosage: 40 MILLIGRAM
     Route: 058
  6. PENTASA [Concomitant]
     Active Substance: MESALAMINE
     Dosage: 1 GRAM, QID
     Route: 065

REACTIONS (8)
  - Chest pain [Recovered/Resolved]
  - Dyspnoea [Recovered/Resolved]
  - Haematochezia [Unknown]
  - Fatigue [Unknown]
  - Decreased appetite [Unknown]
  - Malaise [Unknown]
  - Off label use [Unknown]
  - Drug ineffective [Unknown]

NARRATIVE: CASE EVENT DATE: 20220528
